FAERS Safety Report 16063569 (Version 3)
Quarter: 2019Q1

REPORT INFORMATION
  Report Type: Report from Study
  Country: MX (occurrence: MX)
  Receive Date: 20190312
  Receipt Date: 20190319
  Transmission Date: 20190418
  Serious: Yes (Hospitalization, Disabling, Other)
  Sender: FDA-Public Use
  Company Number: PHHY2019MX055755

PATIENT
  Age: 88 Year
  Sex: Female
  Weight: 48 kg

DRUGS (4)
  1. GLIVEC [Suspect]
     Active Substance: IMATINIB MESYLATE
     Indication: GASTROINTESTINAL STROMAL TUMOUR
     Dosage: 1 DF, QD
     Route: 048
     Dates: start: 2017, end: 2018
  2. REVOLADE [Suspect]
     Active Substance: ELTROMBOPAG
     Dosage: 2 DF (200 MG), QD
     Route: 048
     Dates: start: 20190222
  3. GLIVEC [Suspect]
     Active Substance: IMATINIB MESYLATE
     Dosage: 1 DF, UNK
     Route: 048
     Dates: start: 201902
  4. REVOLADE [Suspect]
     Active Substance: ELTROMBOPAG
     Indication: BONE MARROW FAILURE
     Dosage: 2 DF (50 MG), QD
     Route: 048
     Dates: start: 20190214

REACTIONS (8)
  - Gastrointestinal stromal tumour [Not Recovered/Not Resolved]
  - Neurotoxicity [Not Recovered/Not Resolved]
  - Haemorrhage [Not Recovered/Not Resolved]
  - Bone marrow toxicity [Not Recovered/Not Resolved]
  - Disease recurrence [Not Recovered/Not Resolved]
  - Drug ineffective [Not Recovered/Not Resolved]
  - Condition aggravated [Not Recovered/Not Resolved]
  - Incorrect dose administered [Unknown]

NARRATIVE: CASE EVENT DATE: 201902
